FAERS Safety Report 6573554-7 (Version None)
Quarter: 2010Q1

REPORT INFORMATION
  Report Type: 
  Country: None (occurrence: None)
  Receive Date: 20100208
  Receipt Date: 20100129
  Transmission Date: 20100710
  Serious: Yes (Other)
  Sender: FDA-Public Use
  Company Number: FR-ROCHE-675715

PATIENT
  Sex: Female
  Weight: 20 kg

DRUGS (3)
  1. TAMIFLU [Suspect]
     Indication: DRUG THERAPY
     Dosage: OTHER INDICATION: INFLUENZA
     Route: 048
     Dates: start: 20091211, end: 20091215
  2. HELICIDINE [Concomitant]
     Indication: COUGH
     Route: 048
     Dates: start: 20091211, end: 20091212
  3. DOLIPRANE [Concomitant]
     Route: 048
     Dates: start: 20091211, end: 20091213

REACTIONS (6)
  - CONVULSION [None]
  - EPISTAXIS [None]
  - FALL [None]
  - LOSS OF CONSCIOUSNESS [None]
  - MALAISE [None]
  - MOUTH HAEMORRHAGE [None]
